FAERS Safety Report 21669210 (Version 1)
Quarter: 2022Q4

REPORT INFORMATION
  Report Type: Spontaneous
  Country: US (occurrence: None)
  Receive Date: 20221130
  Receipt Date: 20221130
  Transmission Date: 20230112
  Serious: Yes (Other)
  Sender: FDA-Public Use
  Company Number: None

PATIENT
  Sex: Female

DRUGS (1)
  1. DESCOVY [Suspect]
     Active Substance: EMTRICITABINE\TENOFOVIR ALAFENAMIDE FUMARATE
     Dosage: OTHER QUANTITY : 200-25MG;?FREQUENCY : DAILY;?
     Route: 048
     Dates: start: 201804, end: 202211

REACTIONS (6)
  - Weight decreased [None]
  - Diarrhoea [None]
  - Therapy cessation [None]
  - Faeces discoloured [None]
  - Abdominal pain upper [None]
  - Pancreatic enzymes increased [None]
